FAERS Safety Report 12113436 (Version 1)
Quarter: 2016Q1

REPORT INFORMATION
  Report Type: Spontaneous
  Country: US (occurrence: None)
  Receive Date: 20160224
  Receipt Date: 20160224
  Transmission Date: 20160526
  Serious: Yes (Death)
  Sender: FDA-Public Use
  Company Number: None

PATIENT
  Age: 19 Year
  Sex: Female
  Weight: 136 kg

DRUGS (6)
  1. PREDNISONE. [Suspect]
     Active Substance: PREDNISONE
     Dates: end: 20160211
  2. METHOTREXATE [Suspect]
     Active Substance: METHOTREXATE
     Dates: end: 20160202
  3. DAUNORUBICIN [Suspect]
     Active Substance: DAUNORUBICIN
     Dates: end: 20160209
  4. VINCRISTINE SULFATE. [Suspect]
     Active Substance: VINCRISTINE SULFATE
     Dates: end: 20160209
  5. CYTARABINE. [Suspect]
     Active Substance: CYTARABINE
     Dates: end: 20160126
  6. ONCASPAR [Suspect]
     Active Substance: PEGASPARGASE
     Dates: end: 20160129

REACTIONS (12)
  - Deep vein thrombosis [None]
  - Hyperkalaemia [None]
  - Cardio-respiratory arrest [None]
  - Dialysis [None]
  - Clostridium bacteraemia [None]
  - Necrotising fasciitis [None]
  - Subcutaneous emphysema [None]
  - Pain in extremity [None]
  - Hypotension [None]
  - Haemolysis [None]
  - Shock [None]
  - Bacterial sepsis [None]

NARRATIVE: CASE EVENT DATE: 20160212
